FAERS Safety Report 5350815-0 (Version None)
Quarter: 2007Q2

REPORT INFORMATION
  Report Type: 
  Country: None (occurrence: None)
  Receive Date: 20070608
  Receipt Date: 20070529
  Transmission Date: 20071010
  Serious: Yes (Hospitalization)
  Sender: FDA-Public Use
  Company Number: HQWYE690327OCT06

PATIENT
  Sex: Female
  Weight: 54 kg

DRUGS (1)
  1. OSTELUC [Suspect]
     Indication: ARTHRALGIA
     Dosage: UNSPECIFIED
     Route: 048
     Dates: start: 20060805, end: 20060801

REACTIONS (4)
  - JAUNDICE [None]
  - LIVER DISORDER [None]
  - PRURITUS [None]
  - UNEVALUABLE EVENT [None]
